FAERS Safety Report 5448790-3 (Version None)
Quarter: 2007Q3

REPORT INFORMATION
  Report Type: 
  Country: None (occurrence: None)
  Receive Date: 20070911
  Receipt Date: 20070613
  Transmission Date: 20080115
  Serious: No
  Sender: FDA-Public Use
  Company Number: US-BRISTOL-MYERS SQUIBB COMPANY-13813266

PATIENT
  Sex: Male
  Weight: 104 kg

DRUGS (11)
  1. EMSAM [Suspect]
     Indication: DEPRESSION
     Route: 062
  2. EMSAM [Suspect]
     Indication: PANIC ATTACK
     Route: 062
  3. EMSAM [Suspect]
     Indication: ANXIETY
     Route: 062
  4. INDERAL [Concomitant]
  5. ZESTRIL [Concomitant]
  6. LAMICTAL [Concomitant]
  7. LITHIUM CARBONATE [Concomitant]
  8. XANAX [Concomitant]
  9. SYNTHROID [Concomitant]
  10. ACIPHEX [Concomitant]
  11. PROBENECID [Concomitant]

REACTIONS (1)
  - APPLICATION SITE REACTION [None]
